FAERS Safety Report 9229175 (Version 1)
Quarter: 2013Q2

REPORT INFORMATION
  Report Type: Spontaneous
  Country: US (occurrence: US)
  Receive Date: 20130412
  Receipt Date: 20130412
  Transmission Date: 20140414
  Serious: Yes (Hospitalization)
  Sender: FDA-Public Use
  Company Number: US-ASTELLAS-2012US010390

PATIENT
  Age: 57 Year
  Sex: Female

DRUGS (6)
  1. PROGRAF [Suspect]
     Indication: TRANSPLANT REJECTION
     Dosage: 4 MG, BID
     Route: 065
     Dates: start: 1997
  2. FOLIC ACID [Concomitant]
     Indication: AMINO ACID METABOLISM DISORDER
     Dosage: 1 MG, UID/QD
     Route: 065
     Dates: start: 1997
  3. MECLIZINE [Concomitant]
     Indication: DIZZINESS
     Dosage: 12.5 MG, QID
     Route: 065
     Dates: start: 1997
  4. PRAVASTATIN [Concomitant]
     Indication: BLOOD CHOLESTEROL
     Dosage: 20 MG, UID/QD
     Route: 065
     Dates: start: 1997
  5. MYFORTIC [Concomitant]
     Indication: TRANSPLANT REJECTION
     Dosage: 180 MG, BID
     Route: 065
     Dates: start: 1997
  6. LASIX [Concomitant]
     Indication: FLUID RETENTION
     Dosage: 20 MG, UID/QD
     Route: 065
     Dates: start: 1997

REACTIONS (2)
  - Renal failure acute [Recovering/Resolving]
  - Urinary tract infection [Recovering/Resolving]
